FAERS Safety Report 4659225-2 (Version None)
Quarter: 2005Q2

REPORT INFORMATION
  Report Type: 
  Country: None (occurrence: None)
  Receive Date: 20050511
  Receipt Date: 20050508
  Transmission Date: 20051028
  Serious: Yes (Death)
  Sender: FDA-Public Use
  Company Number: 2005SE02771

PATIENT
  Age: 70 Year

DRUGS (1)
  1. MERREM [Suspect]

REACTIONS (1)
  - HYPERSENSITIVITY [None]
